FAERS Safety Report 14288853 (Version 2)
Quarter: 2017Q4

REPORT INFORMATION
  Report Type: Spontaneous
  Country: US (occurrence: US)
  Receive Date: 20171215
  Receipt Date: 20171229
  Transmission Date: 20180321
  Serious: Yes (Hospitalization)
  Sender: FDA-Public Use
  Company Number: US-ROCHE-2040201

PATIENT
  Sex: Female
  Weight: 74 kg

DRUGS (1)
  1. XOLAIR [Suspect]
     Active Substance: OMALIZUMAB
     Indication: URTICARIA
     Route: 058
     Dates: start: 20170607

REACTIONS (1)
  - Colitis [Unknown]
